FAERS Safety Report 9053648 (Version 1)
Quarter: 2013Q1

REPORT INFORMATION
  Report Type: Spontaneous
  Country: BR (occurrence: BR)
  Receive Date: 20130208
  Receipt Date: 20130208
  Transmission Date: 20140127
  Serious: Yes (Death, Hospitalization, Other)
  Sender: FDA-Public Use
  Company Number: PHHY2012BR106510

PATIENT
  Sex: Male
  Weight: 68 kg

DRUGS (6)
  1. ENABLEX [Suspect]
     Indication: URINARY RETENTION
     Dosage: 1 DF, DAILY (15 MG, DAILY)
  2. ATENOLOL [Concomitant]
  3. MONOCORDIL [Concomitant]
  4. ISOSORBIDE [Concomitant]
  5. PROLOPA [Concomitant]
  6. ARTRODAR [Concomitant]

REACTIONS (3)
  - Respiratory failure [Fatal]
  - Fall [Unknown]
  - Head injury [Unknown]
